FAERS Safety Report 18466139 (Version 2)
Quarter: 2020Q4

REPORT INFORMATION
  Report Type: Spontaneous
  Country: None (occurrence: US)
  Receive Date: 20201105
  Receipt Date: 20201225
  Transmission Date: 20210114
  Serious: Yes (Hospitalization, Other)
  Sender: FDA-Public Use
  Company Number: US-SA-2020SA305779

PATIENT

DRUGS (1)
  1. DUPIXENT [Suspect]
     Active Substance: DUPILUMAB
     Indication: ASTHMA
     Dosage: UNK

REACTIONS (9)
  - Drug-induced liver injury [Recovering/Resolving]
  - Autoimmune hepatitis [Recovering/Resolving]
  - Weight decreased [Recovering/Resolving]
  - Hepatitis [Recovering/Resolving]
  - Decreased appetite [Recovering/Resolving]
  - Hepatomegaly [Recovering/Resolving]
  - Abdominal pain upper [Recovering/Resolving]
  - Lymphadenopathy [Recovering/Resolving]
  - Jaundice [Recovering/Resolving]
